APPROVED DRUG PRODUCT: MYTELASE
Active Ingredient: AMBENONIUM CHLORIDE
Strength: 10MG
Dosage Form/Route: TABLET;ORAL
Application: N010155 | Product #002
Applicant: SANOFI AVENTIS US LLC
Approved: Approved Prior to Jan 1, 1982 | RLD: No | RS: No | Type: DISCN